FAERS Safety Report 11481901 (Version 2)
Quarter: 2015Q3

REPORT INFORMATION
  Report Type: Spontaneous
  Country: IE (occurrence: IE)
  Receive Date: 20150909
  Receipt Date: 20150910
  Transmission Date: 20151125
  Serious: Yes (Other)
  Sender: FDA-Public Use
  Company Number: IE-ROCHE-1631594

PATIENT
  Age: 85 Year
  Sex: Female

DRUGS (1)
  1. LUCENTIS [Suspect]
     Active Substance: RANIBIZUMAB
     Indication: PRODUCT USED FOR UNKNOWN INDICATION
     Dosage: 10 INJECTIONS OVER PERIOD OF 2 YEARS
     Route: 065

REACTIONS (3)
  - Dry age-related macular degeneration [Unknown]
  - Visual acuity reduced [Unknown]
  - Conjunctival scar [Unknown]
